FAERS Safety Report 7876726-4 (Version None)
Quarter: 2011Q4

REPORT INFORMATION
  Report Type: 
  Country: None (occurrence: None)
  Receive Date: 20111031
  Receipt Date: 20111026
  Transmission Date: 20120403
  Serious: Yes (Other)
  Sender: FDA-Public Use
  Company Number: US-SANOFI-AVENTIS-2011SA052468

PATIENT
  Age: 29 Year
  Sex: Female
  Weight: 99.8 kg

DRUGS (10)
  1. LANTUS [Suspect]
     Dosage: DOSE:100 UNIT(S)
     Route: 058
     Dates: start: 20110729, end: 20110811
  2. HUMALOG [Suspect]
     Indication: DIABETES MELLITUS
     Dosage: 60 UNITS AT BREAKFAST, LUNCH AND DINNER DOSE:60 UNIT(S)
     Route: 065
     Dates: start: 20110801, end: 20110801
  3. VITAMIN D [Concomitant]
     Dosage: DOSE:50000 UNIT(S)
     Dates: start: 20090301
  4. LANTUS [Suspect]
     Dosage: DOSE:100 UNIT(S)
     Route: 058
     Dates: start: 20110816
  5. INSULIN DETEMIR [Concomitant]
     Dates: start: 20110728, end: 20110814
  6. LANTUS [Suspect]
     Indication: DIABETES MELLITUS
     Dosage: DOSE:100 UNIT(S)
     Route: 058
     Dates: start: 20110729, end: 20110811
  7. ATIVAN [Concomitant]
     Indication: ANXIETY
     Dates: start: 20090101
  8. LANTUS [Suspect]
     Dosage: DOSE:100 UNIT(S)
     Route: 058
     Dates: start: 20110816
  9. AMBIEN [Concomitant]
     Indication: INSOMNIA
     Route: 048
     Dates: start: 20090101
  10. PROZAC [Concomitant]
     Indication: DEPRESSION
     Dates: start: 20090101, end: 20110801

REACTIONS (11)
  - NASOPHARYNGITIS [None]
  - TREMOR [None]
  - DIZZINESS [None]
  - VISION BLURRED [None]
  - DYSARTHRIA [None]
  - LOSS OF CONSCIOUSNESS [None]
  - PRESYNCOPE [None]
  - BALANCE DISORDER [None]
  - BLOOD GLUCOSE DECREASED [None]
  - HYPOGLYCAEMIA [None]
  - CONFUSIONAL STATE [None]
